FAERS Safety Report 22009915 (Version 1)
Quarter: 2023Q1

REPORT INFORMATION
  Report Type: Spontaneous
  Country: FR (occurrence: FR)
  Receive Date: 20230220
  Receipt Date: 20230220
  Transmission Date: 20230417
  Serious: Yes (Hospitalization)
  Sender: FDA-Public Use
  Company Number: None

PATIENT
  Age: 80 Year
  Sex: Female
  Weight: 65 kg

DRUGS (10)
  1. BISOPROLOL [Suspect]
     Active Substance: BISOPROLOL
     Indication: Hypertension
     Route: 048
  2. HYDROCHLOROTHIAZIDE\IRBESARTAN [Suspect]
     Active Substance: HYDROCHLOROTHIAZIDE\IRBESARTAN
     Indication: Hypertension
     Route: 048
  3. ESCITALOPRAM OXALATE [Suspect]
     Active Substance: ESCITALOPRAM OXALATE
     Indication: Mixed anxiety and depressive disorder
     Dosage: 15 MG, QD
     Route: 048
     Dates: start: 20230106, end: 20230130
  4. OXAZEPAM [Concomitant]
     Active Substance: OXAZEPAM
  5. ATORVASTATIN [Concomitant]
     Active Substance: ATORVASTATIN
  6. LANTUS [Concomitant]
     Active Substance: INSULIN GLARGINE
  7. DOLIPRANE [Concomitant]
     Active Substance: ACETAMINOPHEN
  8. SOLIFENACIN [Concomitant]
     Active Substance: SOLIFENACIN
  9. POLYETHYLENE GLYCOLS [Concomitant]
     Active Substance: POLYETHYLENE GLYCOLS
  10. REPAGLINIDE [Concomitant]
     Active Substance: REPAGLINIDE

REACTIONS (1)
  - Fall [Recovered/Resolved]
